FAERS Safety Report 21376831 (Version 8)
Quarter: 2022Q4

REPORT INFORMATION
  Report Type: Report from Study
  Country: BR (occurrence: BR)
  Receive Date: 20220926
  Receipt Date: 20221121
  Transmission Date: 20230113
  Serious: Yes (Death, Hospitalization, Other)
  Sender: FDA-Public Use
  Company Number: BR-BRISTOL-MYERS SQUIBB COMPANY-2022-106975

PATIENT
  Age: 77 Year
  Sex: Female
  Weight: 38 kg

DRUGS (8)
  1. LENALIDOMIDE [Suspect]
     Active Substance: LENALIDOMIDE
     Indication: Non-Hodgkin^s lymphoma
     Route: 048
     Dates: start: 20220909, end: 20221003
  2. RITUXIMAB [Suspect]
     Active Substance: RITUXIMAB
     Indication: Non-Hodgkin^s lymphoma
     Route: 042
     Dates: start: 20220909, end: 20221003
  3. TEICOPLANIN [Concomitant]
     Active Substance: TEICOPLANIN
     Indication: Infection
     Route: 042
     Dates: start: 20220912, end: 20220919
  4. OXYGEN [Concomitant]
     Active Substance: OXYGEN
     Indication: Product used for unknown indication
     Route: 065
  5. PIPERACILLIN SODIUM\TAZOBACTAM SODIUM [Concomitant]
     Active Substance: PIPERACILLIN SODIUM\TAZOBACTAM SODIUM
     Indication: Product used for unknown indication
     Route: 065
     Dates: start: 20220912, end: 20220919
  6. FUROSEMIDE [Concomitant]
     Active Substance: FUROSEMIDE
     Indication: Product used for unknown indication
     Route: 065
     Dates: start: 20220909, end: 20220909
  7. HYDROCORTISONE [Concomitant]
     Active Substance: HYDROCORTISONE
     Indication: Product used for unknown indication
     Dosage: 1 DAY
     Route: 042
     Dates: start: 20220909, end: 20220909
  8. HUMAN RED BLOOD CELL [Concomitant]
     Active Substance: HUMAN RED BLOOD CELL
     Indication: Product used for unknown indication
     Dosage: 1 DAY
     Route: 042
     Dates: start: 20220912

REACTIONS (8)
  - Death [Fatal]
  - Infusion related reaction [Recovered/Resolved]
  - Anaemia [Recovered/Resolved]
  - Cytokine release syndrome [Recovered/Resolved]
  - Infection [Recovered/Resolved]
  - Immunosuppression [Recovered/Resolved]
  - Platelet count decreased [Recovering/Resolving]
  - Renal neoplasm [Recovered/Resolved]

NARRATIVE: CASE EVENT DATE: 20220909
